FAERS Safety Report 16571657 (Version 1)
Quarter: 2019Q3

REPORT INFORMATION
  Report Type: Spontaneous
  Country: JP (occurrence: JP)
  Receive Date: 20190715
  Receipt Date: 20190715
  Transmission Date: 20191004
  Serious: Yes (Other)
  Sender: FDA-Public Use
  Company Number: JP-TEVA-2019-JP-1077715

PATIENT
  Age: 83 Year
  Sex: Male

DRUGS (2)
  1. PREDNISOLONE. [Suspect]
     Active Substance: PREDNISOLONE
     Indication: LARYNGEAL SQUAMOUS CELL CARCINOMA
     Dosage: THE DOSE WAS GRADUALLY TAPERED; FOR 1 MONTH.
     Route: 065
  2. PREDNISOLONE. [Suspect]
     Active Substance: PREDNISOLONE
     Indication: LARYNGEAL OEDEMA

REACTIONS (1)
  - Tuberculosis [Unknown]
